FAERS Safety Report 9033531 (Version 1)
Quarter: 2013Q1

REPORT INFORMATION
  Report Type: Report from Study
  Country: US (occurrence: US)
  Receive Date: 20130128
  Receipt Date: 20130128
  Transmission Date: 20140127
  Serious: Yes (Hospitalization)
  Sender: FDA-Public Use
  Company Number: US-009507513-1301USA011915

PATIENT
  Age: 59 Year
  Sex: Female
  Weight: 54.5 kg

DRUGS (12)
  1. VORINOSTAT [Suspect]
     Indication: DIFFUSE LARGE B-CELL LYMPHOMA
     Dosage: 400 MG, QD ON DAYS 1-5
     Route: 048
     Dates: start: 20121113
  2. VORINOSTAT [Suspect]
     Dosage: 400 MG, QD ON DAYS 1-5
     Route: 048
     Dates: start: 20130115
  3. DOXORUBICIN [Suspect]
     Indication: DIFFUSE LARGE B-CELL LYMPHOMA
     Dosage: 50 MG/M2, ON DAY 3
     Route: 042
     Dates: start: 20121115, end: 20121115
  4. DOXORUBICIN [Suspect]
     Dosage: 50 MG/M2, ON DAY 3
     Route: 042
     Dates: start: 20130118, end: 20130118
  5. RITUXIMAB [Suspect]
     Indication: DIFFUSE LARGE B-CELL LYMPHOMA
     Dosage: 375 MG/M2, ON DAY 3
     Route: 042
     Dates: start: 20121115, end: 20121115
  6. RITUXIMAB [Suspect]
     Dosage: 375 MG/M2, ON DAY 3
     Route: 042
     Dates: start: 20120118, end: 20130118
  7. CYCLOPHOSPHAMIDE [Suspect]
     Indication: DIFFUSE LARGE B-CELL LYMPHOMA
     Dosage: 750 MG/M2, OVER 30-60 MINUTES ON DAY 3
     Route: 042
     Dates: start: 20121115, end: 20121115
  8. CYCLOPHOSPHAMIDE [Suspect]
     Dosage: 750 MG/M2, OVER 30-60 MINUTES ON DAY 3
     Route: 042
     Dates: start: 20130118, end: 20130118
  9. VINCRISTINE [Suspect]
     Indication: DIFFUSE LARGE B-CELL LYMPHOMA
     Dosage: 1.4 MG/M2, ON DAY 3
     Route: 042
     Dates: start: 20121115, end: 20121115
  10. VINCRISTINE [Suspect]
     Dosage: 1.4 MG/M2, ON DAY 3
     Route: 042
     Dates: start: 20130118, end: 20130118
  11. PREDNISONE [Suspect]
     Indication: DIFFUSE LARGE B-CELL LYMPHOMA
     Dosage: 100 MG, QD ON DAYS 3-7
     Route: 048
     Dates: start: 20121115
  12. PREDNISONE [Suspect]
     Dosage: 100 MG, QD ON DAYS 3-7
     Route: 048
     Dates: start: 20130118

REACTIONS (2)
  - Electrocardiogram QT prolonged [Recovering/Resolving]
  - Urinary tract infection [Recovering/Resolving]
